FAERS Safety Report 23189725 (Version 1)
Quarter: 2023Q4

REPORT INFORMATION
  Report Type: Other
  Country: CA (occurrence: None)
  Receive Date: 20231116
  Receipt Date: 20231116
  Transmission Date: 20240109
  Serious: Yes (Hospitalization)
  Sender: FDA-Public Use
  Company Number: CA-ROCHE-3458416

PATIENT
  Sex: Male

DRUGS (1)
  1. ROZLYTREK [Suspect]
     Active Substance: ENTRECTINIB
     Indication: Product used for unknown indication
     Dosage: MORE DOSAGE INFORMATION IS 200 MG DAILY
     Route: 048
     Dates: start: 20231012

REACTIONS (1)
  - Hepatic enzyme increased [Unknown]
